FAERS Safety Report 6289786-1 (Version None)
Quarter: 2009Q3

REPORT INFORMATION
  Report Type: 
  Country: None (occurrence: None)
  Receive Date: 20090730
  Receipt Date: 20080729
  Transmission Date: 20100115
  Serious: Yes (Life-Threatening, Other)
  Sender: FDA-Public Use
  Company Number: US-BRISTOL-MYERS SQUIBB COMPANY-14281117

PATIENT
  Age: 65 Year
  Sex: Female

DRUGS (6)
  1. COUMADIN [Suspect]
     Route: 048
     Dates: start: 20080517, end: 20080517
  2. HEPARIN SODIUM 25,000 UNITS IN DEXTROSE 5% [Suspect]
     Dosage: HEPARIN SODIUM AND 5% DEXTROSE INJECTION IN PLASTIC CONTAINED (50 U/ML). 1 DF = 25,000 UNITS/500ML
     Route: 042
     Dates: start: 20080518, end: 20080518
  3. FOSAMAX [Suspect]
     Route: 048
     Dates: start: 20080518
  4. SODIUM CHLORIDE [Concomitant]
     Route: 042
  5. TYLENOL (CAPLET) [Concomitant]
  6. SINEMET [Concomitant]

REACTIONS (1)
  - GASTROINTESTINAL HAEMORRHAGE [None]
